FAERS Safety Report 9283412 (Version 1)
Quarter: 2013Q2

REPORT INFORMATION
  Report Type: Spontaneous
  Country: US (occurrence: US)
  Receive Date: 20130510
  Receipt Date: 20130510
  Transmission Date: 20140414
  Serious: No
  Sender: FDA-Public Use
  Company Number: US-GLAXOSMITHKLINE-A1006779A

PATIENT
  Age: 57 Year
  Sex: Female
  Weight: 58.2 kg

DRUGS (7)
  1. TYKERB [Suspect]
     Dosage: 1000MG PER DAY
     Route: 048
  2. XELODA [Concomitant]
  3. ZYRTEC [Concomitant]
  4. OXYCODONE [Concomitant]
  5. CALCIUM [Concomitant]
  6. IMODIUM ADVANCED [Concomitant]
  7. VITAMIN D [Concomitant]

REACTIONS (6)
  - Palmar-plantar erythrodysaesthesia syndrome [Unknown]
  - Erythema [Unknown]
  - Swelling [Unknown]
  - Hypoaesthesia [Unknown]
  - Sensory disturbance [Unknown]
  - Fatigue [Unknown]
